FAERS Safety Report 14035056 (Version 1)
Quarter: 2017Q4

REPORT INFORMATION
  Report Type: Spontaneous
  Country: US (occurrence: US)
  Receive Date: 20171003
  Receipt Date: 20171003
  Transmission Date: 20180321
  Serious: No
  Sender: FDA-Public Use
  Company Number: US-GALDERMA-US17006393

PATIENT
  Age: 60 Year
  Sex: Female

DRUGS (2)
  1. WATERED DOWN SOAP [Concomitant]
     Indication: PRODUCT USED FOR UNKNOWN INDICATION
     Route: 061
  2. SOOLANTRA [Suspect]
     Active Substance: IVERMECTIN
     Indication: ACARIASIS
     Dosage: 1%
     Route: 061
     Dates: start: 20170804

REACTIONS (11)
  - Product use in unapproved indication [Recovered/Resolved]
  - Skin hyperpigmentation [Not Recovered/Not Resolved]
  - Scab [Not Recovered/Not Resolved]
  - Skin wound [Not Recovered/Not Resolved]
  - Product use issue [Recovered/Resolved]
  - Intentional product misuse [Recovered/Resolved]
  - Rash papular [Not Recovered/Not Resolved]
  - Skin haemorrhage [Not Recovered/Not Resolved]
  - Condition aggravated [Not Recovered/Not Resolved]
  - Dry skin [Not Recovered/Not Resolved]
  - Acne [Not Recovered/Not Resolved]

NARRATIVE: CASE EVENT DATE: 20170804
